FAERS Safety Report 9013608 (Version 1)
Quarter: 2013Q1

REPORT INFORMATION
  Report Type: Spontaneous
  Country: US (occurrence: US)
  Receive Date: 20130115
  Receipt Date: 20130115
  Transmission Date: 20140127
  Serious: Yes (Hospitalization)
  Sender: FDA-Public Use
  Company Number: PHEH2013US001029

PATIENT
  Sex: Female

DRUGS (4)
  1. DIOVAN HCT [Suspect]
     Indication: HYPERTENSION
     Dosage: 160 MG, DAILY
     Route: 048
  2. OMEPRAZOLE [Concomitant]
  3. CETIRIZINE [Concomitant]
     Indication: HYPERSENSITIVITY
  4. PULMICORT [Concomitant]
     Indication: ASTHMA
     Dosage: 180 UG, DAILY

REACTIONS (2)
  - Asthma [Unknown]
  - Seasonal allergy [Unknown]
